FAERS Safety Report 15083707 (Version 6)
Quarter: 2018Q4

REPORT INFORMATION
  Report Type: Report from Study
  Country: US (occurrence: US)
  Receive Date: 20180628
  Receipt Date: 20181119
  Transmission Date: 20190204
  Serious: Yes (Death, Other)
  Sender: FDA-Public Use
  Company Number: US-CLOVIS ONCOLOGY-CLO-2018-000623

PATIENT
  Age: 80 Year
  Sex: Female

DRUGS (3)
  1. RUBRACA [Suspect]
     Active Substance: RUCAPARIB CAMSYLATE
     Dosage: 600 MG, BID
     Route: 048
     Dates: start: 20180530, end: 20180618
  2. RUBRACA [Suspect]
     Active Substance: RUCAPARIB CAMSYLATE
     Indication: FALLOPIAN TUBE CANCER
     Dosage: 600 MG, BID
     Route: 048
     Dates: start: 20180525, end: 20180618
  3. LEVOTHYROXINE. [Concomitant]
     Active Substance: LEVOTHYROXINE
     Indication: PRODUCT USED FOR UNKNOWN INDICATION

REACTIONS (36)
  - Blood bilirubin increased [Recovered/Resolved]
  - Insomnia [Unknown]
  - Muscular weakness [Not Recovered/Not Resolved]
  - Product dose omission [Unknown]
  - Blood albumin decreased [Recovered/Resolved]
  - Nausea [Recovering/Resolving]
  - Abdominal pain [Not Recovered/Not Resolved]
  - Asthenia [Not Recovered/Not Resolved]
  - Haemoglobin decreased [Unknown]
  - Early satiety [Unknown]
  - Weight decreased [Not Recovered/Not Resolved]
  - Protein total decreased [Recovered/Resolved]
  - Diarrhoea [Recovered/Resolved]
  - Carbohydrate antigen 125 increased [Not Recovered/Not Resolved]
  - Increased tendency to bruise [Unknown]
  - White blood cell count decreased [Recovering/Resolving]
  - Tumour marker increased [Unknown]
  - Dizziness [Not Recovered/Not Resolved]
  - Decreased appetite [Recovered/Resolved]
  - Platelet count decreased [Not Recovered/Not Resolved]
  - Fatigue [Not Recovered/Not Resolved]
  - Metastasis [Fatal]
  - Mesenteric neoplasm [Unknown]
  - Dysstasia [Unknown]
  - Pain [Unknown]
  - Exercise tolerance decreased [Not Recovered/Not Resolved]
  - Vomiting [Recovered/Resolved]
  - Abdominal pain upper [Recovering/Resolving]
  - Headache [Unknown]
  - Red blood cell count decreased [Recovering/Resolving]
  - Dyspnoea [Unknown]
  - Red cell distribution width increased [Recovered/Resolved]
  - Speech disorder [Unknown]
  - Abdominal pain lower [Recovering/Resolving]
  - Diarrhoea [Not Recovered/Not Resolved]
  - Haematocrit decreased [Unknown]

NARRATIVE: CASE EVENT DATE: 2018
